FAERS Safety Report 14565742 (Version 2)
Quarter: 2018Q1

REPORT INFORMATION
  Report Type: Spontaneous
  Country: US (occurrence: US)
  Receive Date: 20180223
  Receipt Date: 20180320
  Transmission Date: 20180509
  Serious: Yes (Other)
  Sender: FDA-Public Use
  Company Number: US-ACCORD-063665

PATIENT
  Age: 66 Year
  Sex: Male

DRUGS (4)
  1. TACROLIMUS. [Suspect]
     Active Substance: TACROLIMUS
     Indication: IMMUNOSUPPRESSANT DRUG THERAPY
     Dosage: 0.1% OPHTHALMIC DROPS??DOSE WAS TAPERED AND DISCONTINUED
     Route: 047
  2. PREDNISONE. [Concomitant]
     Active Substance: PREDNISONE
  3. CICLOSPORIN [Concomitant]
     Active Substance: CYCLOSPORINE
     Dosage: OPHTHALMIC DROPS
     Route: 047
  4. TACROLIMUS. [Suspect]
     Active Substance: TACROLIMUS
     Indication: IMMUNOSUPPRESSANT DRUG THERAPY
     Dosage: 0.5 MG/DAY??DOSE WAS TAPERED AND DISCONTINUED

REACTIONS (2)
  - Optic neuropathy [Recovering/Resolving]
  - Drug level above therapeutic [Unknown]
